FAERS Safety Report 16444991 (Version 2)
Quarter: 2019Q3

REPORT INFORMATION
  Report Type: Spontaneous
  Country: FR (occurrence: FR)
  Receive Date: 20190618
  Receipt Date: 20190730
  Transmission Date: 20191004
  Serious: Yes (Death, Congenital Anomaly)
  Sender: FDA-Public Use
  Company Number: FR-TEVA-2019-FR-1063232

PATIENT
  Sex: Female
  Weight: .14 kg

DRUGS (5)
  1. ESOMEPRAZOLE. [Suspect]
     Active Substance: ESOMEPRAZOLE MAGNESIUM
     Indication: PROPHYLAXIS
     Dosage: 20 MILLIGRAM DAILY;
     Route: 064
     Dates: start: 20180204, end: 20180718
  2. CORTANCYL 5 MG TABLET [Suspect]
     Active Substance: PREDNISONE
     Indication: SJOGREN^S SYNDROME
     Dosage: 1 DOSAGE FORMS DAILY;
     Route: 064
     Dates: start: 20180204, end: 20180718
  3. DIFFU K, CAPSULE [Suspect]
     Active Substance: POTASSIUM CHLORIDE
     Indication: MINERAL SUPPLEMENTATION
     Dosage: 1 DOSAGE FORMS DAILY;
     Route: 064
     Dates: start: 20180204, end: 20180718
  4. PLAQUENIL [Suspect]
     Active Substance: HYDROXYCHLOROQUINE SULFATE
     Indication: SJOGREN^S SYNDROME
     Dosage: PLAQUENIL 200 MG, COATED TABLET
     Route: 064
     Dates: start: 20180204, end: 20180718
  5. IMUREL [Suspect]
     Active Substance: AZATHIOPRINE SODIUM
     Indication: SJOGREN^S SYNDROME
     Dosage: 150 MILLIGRAM DAILY;
     Route: 064
     Dates: start: 20180204, end: 20180718

REACTIONS (6)
  - Premature separation of placenta [Fatal]
  - Foetal growth restriction [Fatal]
  - Premature baby [Fatal]
  - Congenital osteodystrophy [Fatal]
  - Congenital bowing of long bones [Fatal]
  - Patent ductus arteriosus [Fatal]

NARRATIVE: CASE EVENT DATE: 20180523
